FAERS Safety Report 13039561 (Version 5)
Quarter: 2017Q4

REPORT INFORMATION
  Report Type: Spontaneous
  Country: US (occurrence: US)
  Receive Date: 20161219
  Receipt Date: 20171006
  Transmission Date: 20180320
  Serious: No
  Sender: FDA-Public Use
  Company Number: US-ACTELION-A-NJ2016-146605

PATIENT
  Age: 86 Year
  Sex: Female
  Weight: 104.31 kg

DRUGS (6)
  1. UPTRAVI [Suspect]
     Active Substance: SELEXIPAG
     Dosage: 200 MCG, BID
     Route: 048
  2. UPTRAVI [Suspect]
     Active Substance: SELEXIPAG
     Dosage: 1400 MCG, BID
     Route: 048
     Dates: start: 201703
  3. ADEMPAS [Concomitant]
     Active Substance: RIOCIGUAT
  4. UPTRAVI [Suspect]
     Active Substance: SELEXIPAG
     Dosage: 1600 MCG, BID
     Route: 048
  5. UPTRAVI [Suspect]
     Active Substance: SELEXIPAG
     Indication: PULMONARY ARTERIAL HYPERTENSION
     Dosage: 400 MCG, BID
     Route: 048
     Dates: start: 20161116
  6. ELIQUIS [Concomitant]
     Active Substance: APIXABAN

REACTIONS (9)
  - Blood pressure increased [Unknown]
  - Diarrhoea [Not Recovered/Not Resolved]
  - Chills [Unknown]
  - Drug dose omission [Unknown]
  - Feeling hot [Unknown]
  - Hyperhidrosis [Recovering/Resolving]
  - Pain in extremity [Unknown]
  - Dizziness [Recovering/Resolving]
  - Oxygen saturation decreased [Unknown]

NARRATIVE: CASE EVENT DATE: 20161202
